FAERS Safety Report 11215870 (Version 1)
Quarter: 2015Q2

REPORT INFORMATION
  Report Type: Spontaneous
  Country: GB (occurrence: None)
  Receive Date: 20150622
  Receipt Date: 20150622
  Transmission Date: 20150821
  Serious: Yes (Hospitalization)
  Sender: FDA-Public Use
  Company Number: FK201502900

PATIENT
  Age: 80 Year
  Sex: Female

DRUGS (8)
  1. PRIADEL (LITHIUM CARBONATE) [Suspect]
     Active Substance: LITHIUM CARBONATE
     Indication: PRODUCT USED FOR UNKNOWN INDICATION
  2. RISPERIDONE. [Concomitant]
     Active Substance: RISPERIDONE
  3. LORAZEPAM. [Concomitant]
     Active Substance: LORAZEPAM
  4. ACEBUTOLOL [Concomitant]
     Active Substance: ACEBUTOLOL
  5. ATORVASTATIN [Concomitant]
     Active Substance: ATORVASTATIN
  6. FUROSEMID [Suspect]
     Active Substance: FUROSEMIDE
     Indication: PRODUCT USED FOR UNKNOWN INDICATION
  7. ASPIRIN (ACETYLSALICYLIC ACID) [Concomitant]
     Active Substance: ASPIRIN
  8. MUTIVITAMIN (VIGRAN) [Concomitant]

REACTIONS (4)
  - Toxicity to various agents [None]
  - Agitation [None]
  - Hypophagia [None]
  - Tremor [None]
